FAERS Safety Report 8767356 (Version 2)
Quarter: 2012Q4

REPORT INFORMATION
  Report Type: Report from Study
  Country: US (occurrence: US)
  Receive Date: 20120904
  Receipt Date: 20120921
  Transmission Date: 20130627
  Serious: Yes (Other)
  Sender: FDA-Public Use
  Company Number: US-ABBOTT-12P-163-0973664-00

PATIENT
  Age: 49 Year
  Sex: Female

DRUGS (7)
  1. HUMIRA 40 MG/0.8 ML PEN [Suspect]
     Indication: CROHN^S DISEASE
     Dosage: Every two weeks
     Dates: start: 200801
  2. LYRICA [Concomitant]
     Indication: CROHN^S DISEASE
     Dosage: Once twice a day
  3. METHOTREXATE [Concomitant]
     Indication: ARTHRITIS
     Dosage: 2.5 mg, 6 pills a week
  4. FOLIC ACID [Concomitant]
     Indication: PRODUCT USED FOR UNKNOWN INDICATION
  5. VITAMIN B12 [Concomitant]
     Indication: PRODUCT USED FOR UNKNOWN INDICATION
  6. TRAMADOL [Concomitant]
     Indication: PAIN
  7. CELEXA [Concomitant]
     Indication: DEPRESSION

REACTIONS (2)
  - Crohn^s disease [Unknown]
  - Injection site pain [Unknown]
